FAERS Safety Report 4567156-1 (Version None)
Quarter: 2005Q1

REPORT INFORMATION
  Report Type: 
  Country: None (occurrence: None)
  Receive Date: 20050201
  Receipt Date: 20031216
  Transmission Date: 20050727
  Serious: Yes (Other)
  Sender: FDA-Public Use
  Company Number: US-GLAXOSMITHKLINE-A0443971A

PATIENT
  Age: 24 Year
  Sex: Female
  Weight: 65.5 kg

DRUGS (1)
  1. PAXIL [Suspect]
     Indication: PANIC DISORDER
     Route: 048
     Dates: start: 20020712, end: 20021001

REACTIONS (11)
  - BLOOD ALCOHOL INCREASED [None]
  - DIZZINESS [None]
  - DRUG INTOLERANCE [None]
  - DRUG WITHDRAWAL SYNDROME [None]
  - FALL [None]
  - FEELING ABNORMAL [None]
  - NAUSEA [None]
  - SOMNOLENCE [None]
  - SUICIDAL IDEATION [None]
  - TOXICOLOGIC TEST ABNORMAL [None]
  - VOMITING [None]
